FAERS Safety Report 4735056-X (Version None)
Quarter: 2005Q3

REPORT INFORMATION
  Report Type: 
  Country: None (occurrence: None)
  Receive Date: 20050804
  Receipt Date: 20050719
  Transmission Date: 20060218
  Serious: Yes (Death)
  Sender: FDA-Public Use
  Company Number: 142659USA

PATIENT
  Age: 71 Year
  Sex: Female

DRUGS (1)
  1. NOREPINEPHRINE [Suspect]
     Indication: MEDICATION ERROR
     Dosage: 1 MILLIGRAM DAILY INTRAVENOUS (NOS)
     Route: 042

REACTIONS (2)
  - DRUG ADMINISTRATION ERROR [None]
  - MEDICATION ERROR [None]
